FAERS Safety Report 4841802-7 (Version None)
Quarter: 2005Q4

REPORT INFORMATION
  Report Type: 
  Country: None (occurrence: None)
  Receive Date: 20051125
  Receipt Date: 20051107
  Transmission Date: 20060501
  Serious: Yes (Death)
  Sender: FDA-Public Use
  Company Number: 2005-BP-19674RO

PATIENT
  Age: 27 Year

DRUGS (3)
  1. LORAZEPAM [Suspect]
  2. DEXTROAMPHETAMINE (DEXAMFETAMINE) [Suspect]
  3. MARIJUANA (CANNABIS SATIVA) [Suspect]

REACTIONS (2)
  - DRUG ABUSER [None]
  - MULTIPLE DRUG OVERDOSE [None]
